FAERS Safety Report 11730797 (Version 1)
Quarter: 2015Q4

REPORT INFORMATION
  Report Type: Spontaneous
  Country: US (occurrence: US)
  Receive Date: 20151110
  Receipt Date: 20151110
  Transmission Date: 20160304
  Serious: No
  Sender: FDA-Public Use
  Company Number: US-ELI_LILLY_AND_COMPANY-US201112007410

PATIENT
  Sex: Female

DRUGS (2)
  1. FORTEO [Suspect]
     Active Substance: TERIPARATIDE
     Dosage: 20 UG, QD
     Route: 065
  2. FORTEO [Suspect]
     Active Substance: TERIPARATIDE
     Indication: OSTEOPOROSIS
     Dosage: 20 UG, QD

REACTIONS (14)
  - Drug dose omission [Unknown]
  - Sensory disturbance [Unknown]
  - Abdominal discomfort [Unknown]
  - Pain [Not Recovered/Not Resolved]
  - Joint swelling [Unknown]
  - Nasal discomfort [Unknown]
  - Malaise [Unknown]
  - Rhinalgia [Unknown]
  - Petechiae [Unknown]
  - Arthralgia [Not Recovered/Not Resolved]
  - Epistaxis [Unknown]
  - Nausea [Recovering/Resolving]
  - Dysstasia [Unknown]
  - Headache [Recovering/Resolving]
